FAERS Safety Report 11333376 (Version 1)
Quarter: 2015Q3

REPORT INFORMATION
  Report Type: Spontaneous
  Country: US (occurrence: US)
  Receive Date: 20150803
  Receipt Date: 20150803
  Transmission Date: 20151125
  Serious: Yes (Hospitalization, Other)
  Sender: FDA-Public Use
  Company Number: US-ELI_LILLY_AND_COMPANY-US200801006400

PATIENT
  Age: 57 Year
  Sex: Female

DRUGS (1)
  1. ZYPREXA [Suspect]
     Active Substance: OLANZAPINE
     Indication: CONGENITAL BRAIN DAMAGE

REACTIONS (3)
  - Thought blocking [Unknown]
  - Diabetes mellitus [Not Recovered/Not Resolved]
  - Weight increased [Unknown]
